FAERS Safety Report 6691418-5 (Version None)
Quarter: 2010Q2

REPORT INFORMATION
  Report Type: 
  Country: None (occurrence: None)
  Receive Date: 20100414
  Receipt Date: 20091123
  Transmission Date: 20101027
  Serious: Yes (Other)
  Sender: FDA-Public Use
  Company Number: 09-502

PATIENT
  Age: 70 Year
  Sex: Female

DRUGS (5)
  1. ALEVE [Suspect]
     Indication: NERVE COMPRESSION
     Dosage: 1320 MG, DAILY, ORAL
     Route: 048
     Dates: start: 20091109, end: 20091116
  2. METOPROLOL TARTRATE [Concomitant]
  3. LIPITOR [Suspect]
  4. LISINOPRIL AND HYDROCHLOROTHIAZIDE [Concomitant]
  5. TYLENOL [Concomitant]

REACTIONS (5)
  - BLOOD PRESSURE INCREASED [None]
  - CONSTIPATION [None]
  - DIARRHOEA [None]
  - HEADACHE [None]
  - HYPERTENSION [None]
